FAERS Safety Report 10306622 (Version 1)
Quarter: 2014Q3

REPORT INFORMATION
  Report Type: Spontaneous
  Country: US (occurrence: US)
  Receive Date: 20140715
  Receipt Date: 20140715
  Transmission Date: 20150326
  Serious: Yes (Other)
  Sender: FDA-Public Use
  Company Number: US-PFIZER INC-2014193640

PATIENT
  Age: 71 Year
  Sex: Female
  Weight: 63.04 kg

DRUGS (17)
  1. OMEPRAZOLE. [Concomitant]
     Active Substance: OMEPRAZOLE
     Dosage: 20 MG, 1X/DAY
  2. FENOFIBRATE. [Concomitant]
     Active Substance: FENOFIBRATE
     Dosage: 160 MG, 1X/DAY
  3. FERROUS SULPHATE ER [Concomitant]
     Dosage: 325 MG, 1X/DAY
  4. BUPROPION [Concomitant]
     Active Substance: BUPROPION
     Dosage: 150 MG, 1X/DAY
  5. LEVOTHYROXINE [Concomitant]
     Active Substance: LEVOTHYROXINE
     Dosage: 137 UG, 1X/DAY
  6. LISINOPRIL. [Concomitant]
     Active Substance: LISINOPRIL
     Dosage: 20 MG, 1X/DAY
  7. METFORMIN [Concomitant]
     Active Substance: METFORMIN HYDROCHLORIDE
     Dosage: 500 MG, 2X/DAY
  8. PRAVASTATIN [Concomitant]
     Active Substance: PRAVASTATIN\PRAVASTATIN SODIUM
     Dosage: 80 MG, 1X/DAY
  9. TRIAZOLAM. [Concomitant]
     Active Substance: TRIAZOLAM
     Dosage: 0.25 MG, 2X/DAY
  10. CITRACAL + D [Concomitant]
     Active Substance: CALCIUM CITRATE\VITAMIN D
     Dosage: UNK, 2X/DAY
  11. VALIUM [Concomitant]
     Active Substance: DIAZEPAM
     Dosage: 5 MG, TWO TIMES OR AS NEEDED
  12. CRANBERRY. [Concomitant]
     Active Substance: CRANBERRY
     Dosage: UNK
  13. FOLIC ACID. [Concomitant]
     Active Substance: FOLIC ACID
     Dosage: 1 MG, 3X/DAY
  14. TRAMADOL [Concomitant]
     Active Substance: TRAMADOL
     Indication: PAIN
     Dosage: UNK, AS NEEDED
  15. LYRICA [Suspect]
     Active Substance: PREGABALIN
     Indication: DIABETIC NEUROPATHY
     Dosage: 50 MG, 3X/DAY
     Route: 048
     Dates: end: 201407
  16. OXYBUTIN [Concomitant]
     Active Substance: OXYBUTYNIN
     Dosage: UNK
  17. XARELTO [Concomitant]
     Active Substance: RIVAROXABAN
     Dosage: 50 MG, 1X/DAY

REACTIONS (3)
  - Gait disturbance [Unknown]
  - Renal failure [Unknown]
  - Pain in extremity [Unknown]

NARRATIVE: CASE EVENT DATE: 20140626
